FAERS Safety Report 5175609-0 (Version None)
Quarter: 2006Q4

REPORT INFORMATION
  Report Type: 
  Country: None (occurrence: None)
  Receive Date: 20061215
  Receipt Date: 20061211
  Transmission Date: 20070319
  Serious: Yes (Hospitalization, Disabling, Other)
  Sender: FDA-Public Use
  Company Number: US-AVENTIS-200619978US

PATIENT
  Age: 19 Year
  Sex: Female

DRUGS (1)
  1. LOVENOX [Suspect]
     Indication: THROMBOSIS PROPHYLAXIS
     Route: 058
     Dates: start: 20041201

REACTIONS (6)
  - APALLIC SYNDROME [None]
  - CEREBRAL DISORDER [None]
  - CONDITION AGGRAVATED [None]
  - HAEMORRHAGE [None]
  - INJURY [None]
  - POST PROCEDURAL HAEMORRHAGE [None]
